FAERS Safety Report 6532857-2 (Version None)
Quarter: 2010Q1

REPORT INFORMATION
  Report Type: 
  Country: None (occurrence: None)
  Receive Date: 20100111
  Receipt Date: 20091215
  Transmission Date: 20100710
  Serious: No
  Sender: FDA-Public Use
  Company Number: US-BAYER-200917885BCC

PATIENT
  Age: 75 Year
  Sex: Male
  Weight: 81 kg

DRUGS (1)
  1. ALEVE (CAPLET) [Suspect]
     Indication: BACK PAIN
     Dosage: TOOK 4 WHOLE ALEVE CAPLETS WITH WATER OVER A PERIOD OF FOUR DAYS
     Route: 048

REACTIONS (1)
  - ABDOMINAL PAIN UPPER [None]
